FAERS Safety Report 5681000-0 (Version None)
Quarter: 2008Q1

REPORT INFORMATION
  Report Type: 
  Country: None (occurrence: None)
  Receive Date: 20080325
  Receipt Date: 20080312
  Transmission Date: 20080703
  Serious: Yes (Other)
  Sender: FDA-Public Use
  Company Number: 2007SP023082

PATIENT
  Age: 61 Year
  Sex: Female

DRUGS (3)
  1. MIRALAX [Suspect]
     Indication: CONSTIPATION
     Dosage: ONCE; PO
     Route: 048
     Dates: start: 20071111, end: 20071112
  2. MIRALAX [Suspect]
     Indication: CONSTIPATION
     Dosage: ONCE; PO
     Route: 048
     Dates: start: 20071109
  3. MIRALAX [Suspect]
     Indication: CONSTIPATION
     Dosage: ONCE; PO
     Route: 048
     Dates: start: 20071112

REACTIONS (6)
  - ABDOMINAL DISTENSION [None]
  - ABDOMINAL PAIN [None]
  - CONDITION AGGRAVATED [None]
  - PARKINSON'S DISEASE [None]
  - POLLAKIURIA [None]
  - WEIGHT DECREASED [None]
